FAERS Safety Report 9686768 (Version 3)
Quarter: 2014Q1

REPORT INFORMATION
  Report Type: Spontaneous
  Country: IT (occurrence: IT)
  Receive Date: 20131113
  Receipt Date: 20140131
  Transmission Date: 20141002
  Serious: Yes (Other)
  Sender: FDA-Public Use
  Company Number: IT-PFIZER INC-2013322037

PATIENT
  Age: 91 Year
  Sex: Female

DRUGS (2)
  1. TORVAST [Suspect]
     Indication: HYPERCHOLESTEROLAEMIA
     Dosage: 10 MG, DAILY
     Dates: start: 20130807
  2. EUTIROX [Interacting]
     Indication: HYPOTHYROIDISM
     Dosage: 50 UG, DAILY
     Route: 048
     Dates: start: 20130807

REACTIONS (4)
  - Drug interaction [Recovered/Resolved]
  - Aggression [Recovered/Resolved]
  - Agitation [Recovered/Resolved]
  - Insomnia [Recovered/Resolved]
